FAERS Safety Report 17098351 (Version 2)
Quarter: 2019Q4

REPORT INFORMATION
  Report Type: Spontaneous
  Country: JP (occurrence: JP)
  Receive Date: 20191202
  Receipt Date: 20191213
  Transmission Date: 20200122
  Serious: Yes (Other)
  Sender: FDA-Public Use
  Company Number: JP-009507513-1909JPN002077J

PATIENT
  Age: 81 Year
  Sex: Male
  Weight: 62 kg

DRUGS (3)
  1. PEMETREXED DISODIUM [Suspect]
     Active Substance: PEMETREXED DISODIUM
     Indication: NON-SMALL CELL LUNG CANCER
     Dosage: 449 MILLIGRAM, EVERY 4 WEEKS
     Route: 041
     Dates: start: 20190416, end: 20190610
  2. KEYTRUDA [Suspect]
     Active Substance: PEMBROLIZUMAB
     Indication: NON-SMALL CELL LUNG CANCER
     Dosage: 200 MILLIGRAM, EVERY 4 WEEKS
     Route: 041
     Dates: start: 20190416, end: 20190610
  3. CARBOPLATIN. [Suspect]
     Active Substance: CARBOPLATIN
     Indication: NON-SMALL CELL LUNG CANCER
     Dosage: 848 MILLIGRAM, EVERY 4 WEEKS
     Route: 041
     Dates: start: 20190416, end: 20190610

REACTIONS (4)
  - Interstitial lung disease [Recovered/Resolved]
  - Off label use [Unknown]
  - Malignant neoplasm progression [Unknown]
  - Lymphangiosis carcinomatosa [Unknown]

NARRATIVE: CASE EVENT DATE: 2019
